FAERS Safety Report 12141020 (Version 1)
Quarter: 2016Q1

REPORT INFORMATION
  Report Type: Spontaneous
  Country: US (occurrence: US)
  Receive Date: 20160303
  Receipt Date: 20160303
  Transmission Date: 20160526
  Serious: No
  Sender: FDA-Public Use
  Company Number: US-MALLINCKRODT-T201502379

PATIENT
  Age: 56 Year
  Sex: Female

DRUGS (4)
  1. BUSPIRONE [Suspect]
     Active Substance: BUSPIRONE HYDROCHLORIDE
     Indication: ANXIETY DISORDER
     Dosage: UNKNOWN
     Route: 065
  2. PRISTIQ EXTENDED RELEASE [Suspect]
     Active Substance: DESVENLAFAXINE SUCCINATE
     Indication: ANXIETY DISORDER
     Dosage: UNKNOWN
     Route: 065
  3. MYRBETRIQ [Suspect]
     Active Substance: MIRABEGRON
     Indication: PRODUCT USED FOR UNKNOWN INDICATION
     Dosage: 25 MG, QD
     Route: 065
     Dates: start: 201502
  4. TEMAZEPAM. [Suspect]
     Active Substance: TEMAZEPAM
     Indication: ANXIETY DISORDER
     Dosage: UNKNOWN
     Route: 065

REACTIONS (3)
  - Feeling abnormal [Unknown]
  - Drug interaction [Unknown]
  - Anxiety [Unknown]
